FAERS Safety Report 4361698-X (Version None)
Quarter: 2004Q2

REPORT INFORMATION
  Report Type: 
  Country: None (occurrence: None)
  Receive Date: 20040521
  Receipt Date: 20040427
  Transmission Date: 20050107
  Serious: No
  Sender: FDA-Public Use
  Company Number: US-GLAXOSMITHKLINE-A0508638A

PATIENT
  Sex: Female

DRUGS (2)
  1. WELLBUTRIN XL [Suspect]
     Dosage: 150MG TWICE PER DAY
     Route: 048
     Dates: end: 20040415
  2. LEVOTHYROXINE SODIUM [Concomitant]

REACTIONS (3)
  - AMNESIA [None]
  - ERYTHEMA [None]
  - URTICARIA [None]
